FAERS Safety Report 21380450 (Version 2)
Quarter: 2022Q4

REPORT INFORMATION
  Report Type: Report from Study
  Country: US (occurrence: US)
  Receive Date: 20220927
  Receipt Date: 20221122
  Transmission Date: 20230113
  Serious: No
  Sender: FDA-Public Use
  Company Number: US-ABBVIE-22K-163-4380073-00

PATIENT
  Age: 43 Year
  Sex: Female
  Weight: 74.842 kg

DRUGS (9)
  1. HUMIRA [Suspect]
     Active Substance: ADALIMUMAB
     Indication: Hidradenitis
     Dosage: CITRATE FREE?STRENGTH: 40 MILLIGRAM
     Route: 058
     Dates: start: 20211227, end: 20220519
  2. HUMIRA [Suspect]
     Active Substance: ADALIMUMAB
     Dosage: CITRATE FREE?STRENGTH: 40 MILLIGRAM
     Route: 058
     Dates: start: 20211227, end: 20211227
  3. HUMIRA [Suspect]
     Active Substance: ADALIMUMAB
     Dosage: CITRATE FREE?STRENGTH: 40 MILLIGRAM
     Route: 058
     Dates: start: 20220727
  4. SPIRONOLACTONE [Concomitant]
     Active Substance: SPIRONOLACTONE
     Indication: Hidradenitis
     Route: 048
     Dates: start: 20210329, end: 20211015
  5. SPIRONOLACTONE [Concomitant]
     Active Substance: SPIRONOLACTONE
     Indication: Hidradenitis
     Dosage: 100 MILLIGRAM
     Route: 048
     Dates: start: 20220819
  6. MODERNA COVID-19 VACCINE [Concomitant]
     Active Substance: ELASOMERAN
     Indication: COVID-19 immunisation
     Dosage: TIME INTERVAL: 1 TOTAL: 1 I N ONCE
     Route: 030
  7. METHOTREXATE [Concomitant]
     Active Substance: METHOTREXATE
     Indication: Product used for unknown indication
  8. CLINDAMYCIN [Concomitant]
     Active Substance: CLINDAMYCIN
     Indication: Hidradenitis
     Route: 061
     Dates: start: 20220727
  9. BENZOYL PEROXIDE [Concomitant]
     Active Substance: BENZOYL PEROXIDE
     Indication: Hidradenitis
     Route: 061
     Dates: start: 20220323

REACTIONS (9)
  - Haemorrhage [Recovering/Resolving]
  - Tooth infection [Unknown]
  - Limb injury [Recovering/Resolving]
  - Pyrexia [Recovered/Resolved]
  - Hidradenitis [Recovering/Resolving]
  - Pyrexia [Recovered/Resolved]
  - Abdominal pain upper [Recovering/Resolving]
  - Toothache [Unknown]
  - Gastrointestinal disorder [Unknown]

NARRATIVE: CASE EVENT DATE: 20220323
